FAERS Safety Report 6270821-1 (Version None)
Quarter: 2009Q3

REPORT INFORMATION
  Report Type: 
  Country: None (occurrence: None)
  Receive Date: 20090716
  Receipt Date: 20090706
  Transmission Date: 20100115
  Serious: Yes (Other)
  Sender: FDA-Public Use
  Company Number: PHEH2009US07027

PATIENT
  Sex: Male
  Weight: 86.2 kg

DRUGS (7)
  1. GLEEVEC [Suspect]
     Indication: GASTROINTESTINAL STROMAL TUMOUR
     Dosage: 400 MG, BID
     Route: 048
     Dates: start: 20090509, end: 20090609
  2. ASPIRIN [Concomitant]
     Dosage: 81 MG, QD
     Route: 048
     Dates: start: 20090624
  3. CENTRUM SILVER [Concomitant]
     Dosage: 1 TABLET DAILY
     Route: 048
     Dates: start: 20090624
  4. DILTIAZEM [Concomitant]
     Dosage: 360 MG, QD
     Route: 048
     Dates: start: 20080430
  5. FERROUS SULFATE TAB [Concomitant]
     Dosage: 325 MG, TID
     Dates: start: 20080430
  6. HYDROCHLOROTHIAZIDE [Concomitant]
     Indication: HYPERTENSION
     Dosage: 50 MG, QD
     Route: 048
     Dates: start: 20081111
  7. POTASSIUM GLUCONATE [Concomitant]
     Dosage: 595 MG, QD
     Route: 048
     Dates: start: 20090624

REACTIONS (12)
  - BLOOD ALKALINE PHOSPHATASE INCREASED [None]
  - BLOOD LACTATE DEHYDROGENASE INCREASED [None]
  - CHOLELITHIASIS [None]
  - DECREASED APPETITE [None]
  - DISEASE PROGRESSION [None]
  - DRUG INEFFECTIVE [None]
  - GALLBLADDER ENLARGEMENT [None]
  - HEPATIC MASS [None]
  - METASTATIC NEOPLASM [None]
  - NAUSEA [None]
  - RED BLOOD CELL COUNT DECREASED [None]
  - RENAL CYST [None]
